FAERS Safety Report 6166872-8 (Version None)
Quarter: 2009Q2

REPORT INFORMATION
  Report Type: 
  Country: None (occurrence: None)
  Receive Date: 20090424
  Receipt Date: 20090416
  Transmission Date: 20091009
  Serious: Yes (Death, Hospitalization)
  Sender: FDA-Public Use
  Company Number: A0780205A

PATIENT
  Age: 64 Year
  Sex: Female

DRUGS (1)
  1. ADVAIR HFA [Suspect]
     Dosage: 1PUFF TWICE PER DAY
     Route: 055

REACTIONS (7)
  - ACUTE RESPIRATORY FAILURE [None]
  - CARDIAC ARREST [None]
  - ELECTROMECHANICAL DISSOCIATION [None]
  - HYPERKALAEMIA [None]
  - RESPIRATORY ACIDOSIS [None]
  - STATUS ASTHMATICUS [None]
  - VENTRICULAR FIBRILLATION [None]
